FAERS Safety Report 16694195 (Version 1)
Quarter: 2019Q3

REPORT INFORMATION
  Report Type: Spontaneous
  Country: US (occurrence: US)
  Receive Date: 20190812
  Receipt Date: 20190812
  Transmission Date: 20191004
  Serious: No
  Sender: FDA-Public Use
  Company Number: US-SA-2019SA219690

PATIENT
  Age: 30 Year
  Sex: Female

DRUGS (7)
  1. PAZEO [Concomitant]
     Active Substance: OLOPATADINE HYDROCHLORIDE
  2. PATANASE [Concomitant]
     Active Substance: OLOPATADINE HYDROCHLORIDE
  3. FLONASE ALLERGY RELIEF [Concomitant]
     Active Substance: FLUTICASONE PROPIONATE
  4. TRIAMCINOLON [TRIAMCINOLONE ACETONIDE] [Concomitant]
  5. DUPIXENT [Suspect]
     Active Substance: DUPILUMAB
     Indication: DERMATITIS ATOPIC
     Dosage: 300 MG, QOW
     Route: 058
     Dates: start: 20180921
  6. AZELASTINE. [Concomitant]
     Active Substance: AZELASTINE HYDROCHLORIDE
  7. OLUX [Concomitant]
     Active Substance: CLOBETASOL PROPIONATE

REACTIONS (2)
  - Rash [Not Recovered/Not Resolved]
  - Product dose omission [Not Recovered/Not Resolved]

NARRATIVE: CASE EVENT DATE: 201907
